FAERS Safety Report 24719514 (Version 3)
Quarter: 2025Q3

REPORT INFORMATION
  Report Type: Spontaneous
  Country: US (occurrence: US)
  Receive Date: 20241211
  Receipt Date: 20250918
  Transmission Date: 20251020
  Serious: No
  Sender: ROCHE
  Company Number: US-ROCHE-10000151196

PATIENT
  Sex: Female

DRUGS (3)
  1. HEMLIBRA [Suspect]
     Active Substance: EMICIZUMAB-KXWH
     Indication: Factor VIII deficiency
     Dosage: STRENGTH: 60 MG/0.4 ML AND 12 MG/0.4 ML
     Route: 058
     Dates: start: 202408
  2. HEMLIBRA [Suspect]
     Active Substance: EMICIZUMAB-KXWH
     Dosage: STRENGTH: 105MG/.7ML
     Route: 058
     Dates: start: 202408
  3. KOVALTRY [Concomitant]
     Active Substance: ANTIHEMOPHILIC FACTOR, HUMAN RECOMBINANT

REACTIONS (2)
  - Tongue haemorrhage [Recovered/Resolved]
  - Eyelid bleeding [Unknown]
